FAERS Safety Report 4479285-1 (Version None)
Quarter: 2004Q4

REPORT INFORMATION
  Report Type: 
  Country: None (occurrence: None)
  Receive Date: 20041019
  Receipt Date: 20041019
  Transmission Date: 20050328
  Serious: Yes (Life-Threatening, Hospitalization)
  Sender: FDA-Public Use
  Company Number: None

PATIENT
  Sex: Female
  Weight: 101.6057 kg

DRUGS (1)
  1. ARAVA [Suspect]
     Indication: ARTHRITIS
     Dosage: 20 MG PO QD
     Route: 048

REACTIONS (3)
  - LUNG INFILTRATION [None]
  - PLEURAL EFFUSION [None]
  - STREPTOCOCCAL INFECTION [None]
